FAERS Safety Report 17676737 (Version 1)
Quarter: 2020Q2

REPORT INFORMATION
  Report Type: Spontaneous
  Country: US (occurrence: US)
  Receive Date: 20200416
  Receipt Date: 20200416
  Transmission Date: 20200714
  Serious: No
  Sender: FDA-Public Use
  Company Number: US-SEBELA IRELAND LIMITED-2020SEB00011

PATIENT
  Sex: Male
  Weight: 78.2 kg

DRUGS (7)
  1. LACTULOSE. [Suspect]
     Active Substance: LACTULOSE
     Indication: HEPATIC ENCEPHALOPATHY
     Dosage: UNK
  2. INSPRA [Concomitant]
     Active Substance: EPLERENONE
     Dosage: 200 MG, 1X/DAY
     Route: 048
  3. SERTRALINE [Concomitant]
     Active Substance: SERTRALINE HYDROCHLORIDE
     Dosage: 100 MG, 1X/DAY
  4. FUROSEMIDE. [Concomitant]
     Active Substance: FUROSEMIDE
     Dosage: 60 MG, 1X/DAY
  5. IMURAN [Suspect]
     Active Substance: AZATHIOPRINE
     Indication: COLITIS ULCERATIVE
     Dosage: UNK
  6. INSPRA [Concomitant]
     Active Substance: EPLERENONE
     Dosage: 150 MG, 1X/DAY
     Route: 048
     Dates: start: 20180424
  7. RIFAXIMIN. [Concomitant]
     Active Substance: RIFAXIMIN

REACTIONS (2)
  - Drug ineffective for unapproved indication [Not Recovered/Not Resolved]
  - Colitis ulcerative [Not Recovered/Not Resolved]
